FAERS Safety Report 6768353-7 (Version None)
Quarter: 2010Q2

REPORT INFORMATION
  Report Type: 
  Country: None (occurrence: None)
  Receive Date: 20100614
  Receipt Date: 20100521
  Transmission Date: 20101027
  Serious: Yes (Hospitalization)
  Sender: FDA-Public Use
  Company Number: DE-BRISTOL-MYERS SQUIBB COMPANY-15140353

PATIENT
  Age: 33 Year
  Sex: Male
  Weight: 120 kg

DRUGS (5)
  1. METFORMIN HCL [Suspect]
     Indication: TYPE 2 DIABETES MELLITUS
     Route: 048
     Dates: start: 20100310
  2. CARBAMAZEPINE [Suspect]
     Indication: EPILEPSY
     Dosage: 1 DF: 600 TAB, 0.5 - 0 - 1
     Route: 048
     Dates: end: 20100315
  3. LAMOTRIGINE [Suspect]
     Indication: EPILEPSY
     Dosage: 1 DOSAGE FORM - 200 MG TABLET. HALF TAB IN THE MORNING.
     Route: 048
  4. OXCARBAZEPINE [Concomitant]
     Indication: EPILEPSY
     Dosage: FORMULATION:FILM COATED TAB;0.5-0-1 DF/D
     Route: 048
  5. LANTUS [Concomitant]
     Indication: TYPE 2 DIABETES MELLITUS
     Route: 058
     Dates: start: 20100315

REACTIONS (2)
  - CONVULSION [None]
  - DYSLIPIDAEMIA [None]
